FAERS Safety Report 4277559-0 (Version None)
Quarter: 2004Q1

REPORT INFORMATION
  Report Type: 
  Country: None (occurrence: None)
  Receive Date: 20040121
  Receipt Date: 20040121
  Transmission Date: 20041129
  Serious: Yes (Hospitalization)
  Sender: FDA-Public Use
  Company Number: None

PATIENT
  Age: 41 Year
  Sex: Male
  Weight: 99.8 kg

DRUGS (6)
  1. TRAZODONE HCL [Suspect]
     Indication: DEPRESSION
     Dosage: 100MG, 100MG QH, ORAL
     Route: 048
  2. PSEUDOEPHEDRINE HCL [Concomitant]
  3. FLUOXETINE HCL [Concomitant]
  4. HYDROCODONE 5/ ACETAMINOPHEN 500 MG [Concomitant]
  5. DOCUSATE NA [Concomitant]
  6. RANITIDINE HCL [Concomitant]

REACTIONS (1)
  - PRIAPISM [None]
